FAERS Safety Report 8555008-1 (Version None)
Quarter: 2012Q3

REPORT INFORMATION
  Report Type: 
  Country: None (occurrence: None)
  Receive Date: 20120731
  Receipt Date: 20120727
  Transmission Date: 20120928
  Serious: Yes (Life-Threatening, Hospitalization)
  Sender: FDA-Public Use
  Company Number: CL-ABBOTT-12P-034-0961421-01

PATIENT
  Sex: Male
  Weight: 87 kg

DRUGS (2)
  1. KALETRA [Suspect]
     Indication: HIV INFECTION
     Dosage: 800/200 DAILY
     Route: 048
     Dates: start: 20120127
  2. LAMIVUDINE (EPIVIR HBV) [Concomitant]
     Indication: HIV INFECTION
     Dosage: DAILY
     Route: 048
     Dates: start: 20120127

REACTIONS (1)
  - ASTHMATIC CRISIS [None]
